FAERS Safety Report 8137012-0 (Version None)
Quarter: 2012Q1

REPORT INFORMATION
  Report Type: 
  Country: None (occurrence: None)
  Receive Date: 20120215
  Receipt Date: 20120206
  Transmission Date: 20120608
  Serious: Yes (Hospitalization)
  Sender: FDA-Public Use
  Company Number: US-BIOGENIDEC-2011BI048855

PATIENT
  Age: 18 Year
  Sex: Female

DRUGS (1)
  1. TYSABRI [Suspect]
     Indication: MULTIPLE SCLEROSIS
     Route: 042
     Dates: start: 20111005, end: 20111005

REACTIONS (7)
  - MOOD SWINGS [None]
  - CONVULSION [None]
  - HEADACHE [None]
  - ACNE [None]
  - DIPLOPIA [None]
  - UHTHOFF'S PHENOMENON [None]
  - HYPOAESTHESIA [None]
